FAERS Safety Report 13631825 (Version 1)
Quarter: 2017Q2

REPORT INFORMATION
  Report Type: Spontaneous
  Country: US (occurrence: US)
  Receive Date: 20170531
  Receipt Date: 20170531
  Transmission Date: 20170830
  Serious: No
  Sender: FDA-Public Use
  Company Number: US-ASTELLAS-1418026

PATIENT
  Sex: Male

DRUGS (1)
  1. TARCEVA [Suspect]
     Active Substance: ERLOTINIB HYDROCHLORIDE
     Indication: RECTAL CANCER
     Route: 048
     Dates: start: 201306, end: 201406

REACTIONS (4)
  - Penile infection [Not Recovered/Not Resolved]
  - Erythema [Not Recovered/Not Resolved]
  - Genital rash [Not Recovered/Not Resolved]
  - Skin discolouration [Not Recovered/Not Resolved]
